FAERS Safety Report 6659418-9 (Version None)
Quarter: 2010Q1

REPORT INFORMATION
  Report Type: 
  Country: None (occurrence: None)
  Receive Date: 20100330
  Receipt Date: 20100322
  Transmission Date: 20100710
  Serious: No
  Sender: FDA-Public Use
  Company Number: US-BIOGENIDEC-2010BI009955

PATIENT
  Age: 44 Year
  Sex: Female

DRUGS (4)
  1. TYSABRI [Suspect]
     Indication: MULTIPLE SCLEROSIS
     Route: 042
     Dates: start: 20081022
  2. AVONEX [Concomitant]
     Indication: MULTIPLE SCLEROSIS
     Route: 030
     Dates: start: 20030707
  3. AVONEX [Concomitant]
     Route: 030
     Dates: start: 20031003
  4. AVONEX [Concomitant]
     Route: 030
     Dates: start: 20081001

REACTIONS (5)
  - MENORRHAGIA [None]
  - NASOPHARYNGITIS [None]
  - SOMNOLENCE [None]
  - VISION BLURRED [None]
  - VITAMIN D DECREASED [None]
